FAERS Safety Report 12503614 (Version 1)
Quarter: 2016Q2

REPORT INFORMATION
  Report Type: Spontaneous
  Country: US (occurrence: None)
  Receive Date: 20160627
  Receipt Date: 20160627
  Transmission Date: 20160815
  Serious: Yes (Disabling)
  Sender: FDA-Public Use
  Company Number: None

PATIENT
  Age: 11 Year
  Sex: Male
  Weight: 58.97 kg

DRUGS (10)
  1. FIBER [Concomitant]
     Active Substance: PSYLLIUM HUSK
  2. SERTRALINE HCL 25MG, 25 MG LUPIN [Suspect]
     Active Substance: SERTRALINE HYDROCHLORIDE
     Indication: ENCEPHALITIS AUTOIMMUNE
     Dosage: 90 TABLET(S) TWICE A DAY TAKEN BY MOUTH
     Route: 048
     Dates: start: 20160601, end: 20160601
  3. OMEPRAZOLE. [Concomitant]
     Active Substance: OMEPRAZOLE
  4. AMOXICILLIAN [Suspect]
     Active Substance: AMOXICILLIN
  5. CALCIUM [Concomitant]
     Active Substance: CALCIUM
  6. KLONOPIN [Concomitant]
     Active Substance: CLONAZEPAM
  7. MULTI VIT [Concomitant]
  8. ZYRTEC [Concomitant]
     Active Substance: CETIRIZINE HYDROCHLORIDE
  9. SERTRALINE HCL 25MG, 25 MG LUPIN [Suspect]
     Active Substance: SERTRALINE HYDROCHLORIDE
     Indication: OBSESSIVE-COMPULSIVE DISORDER
     Dosage: 90 TABLET(S) TWICE A DAY TAKEN BY MOUTH
     Route: 048
     Dates: start: 20160601, end: 20160601
  10. GABAPENTIN. [Concomitant]
     Active Substance: GABAPENTIN

REACTIONS (7)
  - Disease recurrence [None]
  - Product quality issue [None]
  - Condition aggravated [None]
  - Drug withdrawal syndrome [None]
  - Product substitution issue [None]
  - Drug ineffective [None]
  - Obsessive-compulsive disorder [None]

NARRATIVE: CASE EVENT DATE: 20160613
